FAERS Safety Report 5448458-3 (Version None)
Quarter: 2007Q3

REPORT INFORMATION
  Report Type: 
  Country: None (occurrence: None)
  Receive Date: 20070905
  Receipt Date: 20070821
  Transmission Date: 20080115
  Serious: Yes (Hospitalization)
  Sender: FDA-Public Use
  Company Number: 235565K07USA

PATIENT
  Age: 44 Year
  Sex: Female

DRUGS (10)
  1. REBIF [Suspect]
     Indication: MULTIPLE SCLEROSIS
     Dosage: 22 MCG, 3 IN 1 WEEKS, SUBCUTANEOUS, 44 MCG, 3 IN 1 WEEKS, SUBCUTANEOUS
     Route: 058
     Dates: start: 20070613, end: 20070701
  2. REBIF [Suspect]
     Indication: MULTIPLE SCLEROSIS
     Dosage: 22 MCG, 3 IN 1 WEEKS, SUBCUTANEOUS, 44 MCG, 3 IN 1 WEEKS, SUBCUTANEOUS
     Route: 058
     Dates: start: 20070701
  3. ADVAIR (SERETIDE) [Concomitant]
  4. PULMICORT [Concomitant]
  5. ALBUTEROL [Concomitant]
  6. SINGULAIR (MONTELUKAST /01362601) [Concomitant]
  7. ATROVENT [Concomitant]
  8. XOPENEX [Concomitant]
  9. NORVASC [Concomitant]
  10. EXTRA STRENGTH TYLENOL [Concomitant]

REACTIONS (1)
  - ASTHMA [None]
